FAERS Safety Report 4504439-5 (Version None)
Quarter: 2004Q4

REPORT INFORMATION
  Report Type: 
  Country: None (occurrence: None)
  Receive Date: 20041117
  Receipt Date: 20041117
  Transmission Date: 20050328
  Serious: No
  Sender: FDA-Public Use
  Company Number: None

PATIENT
  Age: 75 Year
  Sex: Male
  Weight: 90.7194 kg

DRUGS (9)
  1. PHENYTOIN [Suspect]
     Indication: COMPLEX PARTIAL SEIZURES
     Dosage: 300 MG DAILY [MANY YEARS]
  2. ASPIRIN [Concomitant]
  3. DEPAKOTE [Concomitant]
  4. LIPITOR [Concomitant]
  5. M.V.I. [Concomitant]
  6. CALCIUM [Concomitant]
  7. SYNTHROID [Concomitant]
  8. WARFARIN SODIUM [Concomitant]
  9. LOXAPINE [Concomitant]

REACTIONS (1)
  - DRUG LEVEL DECREASED [None]
